FAERS Safety Report 6038154-6 (Version None)
Quarter: 2009Q1

REPORT INFORMATION
  Report Type: 
  Country: None (occurrence: None)
  Receive Date: 20090115
  Receipt Date: 20090106
  Transmission Date: 20090719
  Serious: Yes (Hospitalization)
  Sender: FDA-Public Use
  Company Number: GB-ROCHE-606621

PATIENT
  Sex: Female
  Weight: 78 kg

DRUGS (1)
  1. ORLISTAT [Suspect]
     Indication: OBESITY
     Route: 048
     Dates: start: 20080630

REACTIONS (3)
  - ABASIA [None]
  - DYSPNOEA [None]
  - INFLUENZA [None]
